FAERS Safety Report 26156662 (Version 1)
Quarter: 2025Q4

REPORT INFORMATION
  Report Type: Spontaneous
  Country: JP (occurrence: JP)
  Receive Date: 20251215
  Receipt Date: 20251215
  Transmission Date: 20260117
  Serious: Yes (Other)
  Sender: TAKEDA
  Company Number: JP-TAKEDA-2025TJP012541

PATIENT
  Sex: Male
  Weight: 80 kg

DRUGS (1)
  1. FEIBA NF [Suspect]
     Active Substance: ANTI-INHIBITOR COAGULANT COMPLEX
     Indication: Factor IX deficiency
     Dosage: 8000 INTERNATIONAL UNIT, 3/WEEK

REACTIONS (3)
  - Compartment syndrome [Unknown]
  - Nephrotic syndrome [Unknown]
  - Treatment noncompliance [Unknown]
